FAERS Safety Report 7501097-2 (Version None)
Quarter: 2011Q2

REPORT INFORMATION
  Report Type: 
  Country: None (occurrence: None)
  Receive Date: 20110524
  Receipt Date: 20110516
  Transmission Date: 20111010
  Serious: Yes (Other)
  Sender: FDA-Public Use
  Company Number: CA-PFIZER INC-2011104731

PATIENT
  Age: 88 Year
  Sex: Female

DRUGS (3)
  1. TEAR DROP [Concomitant]
     Indication: LACRIMAL DISORDER
     Dosage: UNK
  2. XALATAN [Suspect]
     Indication: GLAUCOMA
     Dosage: 1 DROP, 1X/DAY
     Route: 047
     Dates: start: 19960101
  3. TRUSOPT [Concomitant]
     Indication: GLAUCOMA
     Dosage: 1 DROP, 1X/DAY

REACTIONS (2)
  - EYELID PTOSIS [None]
  - INTRAOCULAR PRESSURE INCREASED [None]
